FAERS Safety Report 21718431 (Version 5)
Quarter: 2023Q1

REPORT INFORMATION
  Report Type: Report from Study
  Country: US (occurrence: US)
  Receive Date: 20221212
  Receipt Date: 20230120
  Transmission Date: 20230418
  Serious: Yes (Other)
  Sender: FDA-Public Use
  Company Number: US-ABBVIE-4231650

PATIENT
  Sex: Male
  Weight: 89.357 kg

DRUGS (40)
  1. VENCLEXTA [Suspect]
     Active Substance: VENETOCLAX
     Indication: Mantle cell lymphoma
     Route: 048
  2. VENCLEXTA [Suspect]
     Active Substance: VENETOCLAX
     Indication: Mantle cell lymphoma
     Dosage: 50MG TABLET-CHECK, RAMP UP TO 100 MG THEN 200 MG
     Route: 048
  3. VENCLEXTA [Suspect]
     Active Substance: VENETOCLAX
     Indication: Mantle cell lymphoma
     Dosage: 50MG TABLET-CHECK, RAMP UP TO 100 MG THEN 200 MG
     Route: 048
     Dates: start: 20221116
  4. NORVASC [Concomitant]
     Active Substance: AMLODIPINE BESYLATE
     Indication: Hypertension
     Route: 065
  5. IMBRUVICA [Suspect]
     Active Substance: IBRUTINIB
     Indication: Mantle cell lymphoma refractory
     Dosage: 560 MG/M2
     Route: 048
     Dates: start: 20210223, end: 20220117
  6. ACYCLOVIR [Concomitant]
     Active Substance: ACYCLOVIR
     Indication: Product used for unknown indication
     Route: 065
  7. ACTEMRA [Suspect]
     Active Substance: TOCILIZUMAB
     Indication: Pyrexia
     Route: 065
  8. REVLIMID [Concomitant]
     Active Substance: LENALIDOMIDE
     Indication: Mantle cell lymphoma refractory
     Dosage: X 21 DAYS AND 7 DAYS OFF
     Dates: start: 20221116
  9. REVLIMID [Concomitant]
     Active Substance: LENALIDOMIDE
     Indication: Mantle cell lymphoma refractory
     Dosage: STRENGTH: 20 MG?DOSING FREQUENCY: 21 DAYS AND 7 DAYS OFF
     Route: 065
     Dates: start: 20221116
  10. ASPIRIN [Concomitant]
     Active Substance: ASPIRIN
     Indication: Product used for unknown indication
     Route: 048
  11. BENDAMUSTINE [Concomitant]
     Active Substance: BENDAMUSTINE
     Indication: Mantle cell lymphoma refractory
     Dates: start: 20221116
  12. BENDAMUSTINE [Concomitant]
     Active Substance: BENDAMUSTINE
     Indication: Mantle cell lymphoma refractory
     Dosage: X 3 CYCLES
     Dates: start: 20200819, end: 20201207
  13. BENDAMUSTINE [Concomitant]
     Active Substance: BENDAMUSTINE
     Indication: Mantle cell lymphoma refractory
     Dosage: X 3 CYCLES
     Dates: start: 20200819, end: 20201207
  14. BENDAMUSTINE [Concomitant]
     Active Substance: BENDAMUSTINE
     Indication: Mantle cell lymphoma refractory
     Dates: start: 20221116
  15. CYTARABINE [Concomitant]
     Active Substance: CYTARABINE
     Indication: Mantle cell lymphoma refractory
     Dosage: 2000 MG/M2
     Dates: start: 20220909, end: 20221022
  16. CYTARABINE [Concomitant]
     Active Substance: CYTARABINE
     Indication: Mantle cell lymphoma refractory
     Dosage: 2000 MG/M2
     Dates: start: 20201222, end: 20210208
  17. CYTARABINE [Concomitant]
     Active Substance: CYTARABINE
     Indication: Mantle cell lymphoma refractory
     Dosage: 2000 MG/M2
     Dates: start: 20201222, end: 20210208
  18. CYTARABINE [Concomitant]
     Active Substance: CYTARABINE
     Indication: Mantle cell lymphoma refractory
     Dosage: 2000 MG/M2
     Dates: start: 20220909, end: 20221022
  19. FLUDARABINE [Concomitant]
     Active Substance: FLUDARABINE PHOSPHATE
     Indication: Mantle cell lymphoma refractory
     Dates: start: 20220211
  20. FLUDARABINE [Concomitant]
     Active Substance: FLUDARABINE PHOSPHATE
     Indication: Mantle cell lymphoma refractory
     Dates: start: 20220211, end: 2022
  21. RITUXAN [Suspect]
     Active Substance: RITUXIMAB
     Indication: Mantle cell lymphoma refractory
     Dosage: 375 MG/M2 X 3 CYCLES
     Route: 042
     Dates: start: 20200819, end: 20201014
  22. RITUXAN [Suspect]
     Active Substance: RITUXIMAB
     Indication: Mantle cell lymphoma refractory
     Dosage: INTRAVENOUS (NOT OTHERWISE SPECIFIED) X 3 CYCLES
     Route: 042
     Dates: start: 20201222, end: 20210208
  23. RITUXAN [Suspect]
     Active Substance: RITUXIMAB
     Indication: Mantle cell lymphoma refractory
     Dosage: INTRAVENOUS (NOT OTHERWISE SPECIFIED) X 3 CYCLES
     Route: 042
     Dates: start: 20220929, end: 20221022
  24. RITUXAN [Suspect]
     Active Substance: RITUXIMAB
     Indication: Mantle cell lymphoma refractory
     Route: 042
     Dates: start: 2022
  25. IFOSFAMIDE [Concomitant]
     Active Substance: IFOSFAMIDE
     Indication: Mantle cell lymphoma refractory
     Dosage: 1500 MG/M2, INTRAVENOUS (NOT OTHERWISE SPECIFIED)
     Route: 042
     Dates: start: 20201222, end: 20210208
  26. IFOSFAMIDE [Concomitant]
     Active Substance: IFOSFAMIDE
     Indication: Mantle cell lymphoma refractory
     Dosage: 1500 MG/M2, INTRAVENOUS (NOT OTHERWISE SPECIFIED)
     Route: 042
     Dates: start: 20201222, end: 20210208
  27. CYTOXAN [Concomitant]
     Active Substance: CYCLOPHOSPHAMIDE
     Indication: Mantle cell lymphoma refractory
     Dosage: 200 MG/M2,  INTRAVENOUS (NOT OTHERWISE SPECIFIED)
     Dates: start: 20201222, end: 20210208
  28. CYTOXAN [Concomitant]
     Active Substance: CYCLOPHOSPHAMIDE
     Indication: Mantle cell lymphoma refractory
     Dosage: 200 MG/M2,INTRAVENOUS (NOT OTHERWISE SPECIFIED)
     Route: 042
     Dates: start: 20201222, end: 20210208
  29. OXALIPLATIN [Concomitant]
     Active Substance: OXALIPLATIN
     Indication: Mantle cell lymphoma refractory
     Dosage: 100 MG/M2
     Dates: start: 20220929, end: 20221022
  30. OXALIPLATIN [Concomitant]
     Active Substance: OXALIPLATIN
     Indication: Mantle cell lymphoma refractory
     Dosage: 100 MG/M2
     Dates: start: 20220929, end: 20221022
  31. METHOTREXATE [Concomitant]
     Active Substance: METHOTREXATE
     Indication: Mantle cell lymphoma refractory
     Dosage: 3.5 MG/M2, 2 CYCLES
     Dates: start: 20211228, end: 20220129
  32. METHOTREXATE [Concomitant]
     Active Substance: METHOTREXATE
     Indication: Mantle cell lymphoma refractory
     Dates: start: 20201222, end: 20210208
  33. METHOTREXATE [Concomitant]
     Active Substance: METHOTREXATE
     Indication: Mantle cell lymphoma refractory
     Dates: start: 20201222, end: 20210208
  34. METHOTREXATE [Concomitant]
     Active Substance: METHOTREXATE
     Indication: Mantle cell lymphoma refractory
     Dosage: 3.5 MG/M2, 2 CYCLES
     Dates: start: 20211228, end: 20220129
  35. METHOTREXATE [Concomitant]
     Active Substance: METHOTREXATE
     Indication: Mantle cell lymphoma refractory
     Dates: start: 20201222, end: 20210208
  36. CYCLOPHOSPHAMIDE [Concomitant]
     Active Substance: CYCLOPHOSPHAMIDE
     Indication: Mantle cell lymphoma refractory
     Dates: start: 20220211
  37. CYCLOPHOSPHAMIDE [Concomitant]
     Active Substance: CYCLOPHOSPHAMIDE
     Indication: Mantle cell lymphoma refractory
     Dates: start: 20220211
  38. ETOPOSIDE [Concomitant]
     Active Substance: ETOPOSIDE
     Indication: Mantle cell lymphoma refractory
     Dosage: 60 MG/M2, INTRAVENOUS (NOT OTHERWISE SPECIFIED)
     Route: 042
     Dates: start: 20201222, end: 20210208
  39. ETOPOSIDE [Concomitant]
     Active Substance: ETOPOSIDE
     Indication: Mantle cell lymphoma refractory
     Dosage: 60 MG/M2, INTRAVENOUS (NOT OTHERWISE SPECIFIED)
     Route: 042
     Dates: start: 20201222, end: 20210208
  40. HYDROCHLOROTHIAZIDE [Concomitant]
     Active Substance: HYDROCHLOROTHIAZIDE
     Indication: Hypertension

REACTIONS (6)
  - Mantle cell lymphoma recurrent [Unknown]
  - Nervous system disorder [Unknown]
  - Off label use [Unknown]
  - JC virus infection [Unknown]
  - Pyrexia [Unknown]
  - Disease progression [Not Recovered/Not Resolved]
